FAERS Safety Report 5273172-7 (Version None)
Quarter: 2007Q1

REPORT INFORMATION
  Report Type: 
  Country: None (occurrence: None)
  Receive Date: 20070322
  Receipt Date: 20070310
  Transmission Date: 20070707
  Serious: Yes (Other)
  Sender: FDA-Public Use
  Company Number: FR-PFIZER INC-2007020288

PATIENT
  Sex: Female

DRUGS (1)
  1. CELEBREX [Suspect]
     Indication: TENDONITIS
     Route: 048
     Dates: start: 20070303, end: 20070306

REACTIONS (5)
  - CYSTITIS [None]
  - DIARRHOEA [None]
  - FORMICATION [None]
  - MYOSITIS [None]
  - PARAESTHESIA [None]
